FAERS Safety Report 9349674 (Version 2)
Quarter: 2014Q1

REPORT INFORMATION
  Report Type: Spontaneous
  Country: US (occurrence: US)
  Receive Date: 20130614
  Receipt Date: 20140218
  Transmission Date: 20141002
  Serious: Yes (Hospitalization)
  Sender: FDA-Public Use
  Company Number: US-B.I. PHARMACEUTICALS,INC./RIDGEFIELD-2013-BI-16573BP

PATIENT
  Sex: Female
  Weight: 48.08 kg

DRUGS (11)
  1. PRADAXA [Suspect]
     Indication: CEREBROVASCULAR ACCIDENT PROPHYLAXIS
     Dosage: 300 MG
     Route: 048
     Dates: start: 20120306, end: 20120422
  2. PRADAXA [Suspect]
     Indication: THROMBOSIS PROPHYLAXIS
  3. PRADAXA [Suspect]
     Indication: ATRIAL FIBRILLATION
  4. TRAVATAN [Concomitant]
  5. GABAPENTIN [Concomitant]
     Dosage: 600 MG
     Route: 048
  6. HYDROCODONE-ACETAMINOPHEN [Concomitant]
     Route: 048
  7. MUPIROCIN [Concomitant]
     Route: 061
  8. METHIMAZOLE [Concomitant]
     Dosage: 5 MG
     Route: 048
  9. PROPRANOLOL [Concomitant]
     Dosage: 40 MG
     Route: 048
  10. PANTOPRAZOLE [Concomitant]
     Dosage: 40 MG
     Route: 048
  11. ASPIRIN [Concomitant]
     Dosage: 81 MG
     Route: 048

REACTIONS (2)
  - Gastrointestinal haemorrhage [Unknown]
  - Anaemia [Unknown]
